FAERS Safety Report 24712271 (Version 1)
Quarter: 2024Q4

REPORT INFORMATION
  Report Type: Spontaneous
  Country: CN (occurrence: CN)
  Receive Date: 20241209
  Receipt Date: 20241209
  Transmission Date: 20250115
  Serious: Yes (Life-Threatening, Disabling)
  Sender: PFIZER
  Company Number: CN-PFIZER INC-PV202400157874

PATIENT
  Age: 35 Year
  Sex: Female
  Weight: 69.5 kg

DRUGS (9)
  1. PACLITAXEL [Suspect]
     Active Substance: PACLITAXEL
     Indication: Ovarian cancer
     Dosage: 270 MG, 1X/DAY
     Route: 041
     Dates: start: 20210727, end: 20210727
  2. CARBOPLATIN [Suspect]
     Active Substance: CARBOPLATIN
     Indication: Ovarian cancer
     Dosage: 580 MG, 1X/DAY
     Route: 041
     Dates: start: 20210727, end: 20210727
  3. DEXTROSE [Concomitant]
     Active Substance: DEXTROSE MONOHYDRATE
     Dosage: 600 ML, 1X/DAY
     Route: 041
     Dates: start: 20210727, end: 20210727
  4. DEXTROSE [Concomitant]
     Active Substance: DEXTROSE MONOHYDRATE
     Dosage: 1000 ML, 1X/DAY
     Route: 041
     Dates: start: 20210727, end: 20210727
  5. DEXAMETHASONE [Concomitant]
     Active Substance: DEXAMETHASONE
     Indication: Premedication
     Dosage: UNK
  6. PROMETHAZINE [Concomitant]
     Active Substance: PROMETHAZINE HYDROCHLORIDE
     Indication: Premedication
     Dosage: UNK
  7. CIMETIDINE [Concomitant]
     Active Substance: CIMETIDINE
     Indication: Premedication
     Dosage: UNK
  8. ONDANSETRON [Concomitant]
     Active Substance: ONDANSETRON
     Indication: Premedication
     Dosage: UNK
  9. OLANZAPINE [Concomitant]
     Active Substance: OLANZAPINE
     Indication: Premedication
     Dosage: UNK

REACTIONS (3)
  - White blood cell count decreased [Recovered/Resolved]
  - Neutrophil count decreased [Recovered/Resolved]
  - Anaemia [Recovering/Resolving]

NARRATIVE: CASE EVENT DATE: 20210809
